FAERS Safety Report 10103599 (Version 1)
Quarter: 2014Q2

REPORT INFORMATION
  Report Type: Spontaneous
  Country: IT (occurrence: IT)
  Receive Date: 20140424
  Receipt Date: 20140424
  Transmission Date: 20141212
  Serious: Yes (Other)
  Sender: FDA-Public Use
  Company Number: PHHY2014IT048443

PATIENT
  Sex: 0

DRUGS (2)
  1. ACETYLSALICYLIC ACID [Suspect]
     Dosage: 100 MG, QD
     Route: 048
     Dates: start: 20140101, end: 20140328
  2. PLAVIX [Suspect]
     Dates: start: 20140101, end: 20140328

REACTIONS (1)
  - Epistaxis [Recovered/Resolved]
